FAERS Safety Report 4548523-9 (Version None)
Quarter: 2005Q1

REPORT INFORMATION
  Report Type: 
  Country: None (occurrence: None)
  Receive Date: 20050110
  Receipt Date: 20050105
  Transmission Date: 20050727
  Serious: Yes (Hospitalization)
  Sender: FDA-Public Use
  Company Number: FR-GLAXOSMITHKLINE-B0363769A

PATIENT
  Age: 87 Year
  Sex: Male

DRUGS (6)
  1. CLAMOXYL [Suspect]
     Dosage: 2G FOUR TIMES PER DAY
     Route: 048
     Dates: start: 20041030
  2. EFFERALGAN [Suspect]
     Dosage: 1G THREE TIMES PER DAY
     Route: 048
     Dates: start: 20030101
  3. HEMIDAONIL [Suspect]
     Dosage: 1.25MG TWICE PER DAY
     Route: 048
     Dates: start: 20000101
  4. RIMACTANE [Suspect]
     Dosage: 600MG THREE TIMES PER DAY
     Route: 048
     Dates: start: 20041030
  5. MOPRAL [Suspect]
     Dosage: 20MG TWICE PER DAY
     Route: 048
     Dates: start: 20030101
  6. OMIX [Suspect]
     Dosage: .4MG PER DAY
     Route: 048
     Dates: start: 19990101

REACTIONS (5)
  - CHOLESTASIS [None]
  - CYTOLYTIC HEPATITIS [None]
  - HEPATITIS [None]
  - HEPATITIS CHOLESTATIC [None]
  - LYMPHOPENIA [None]
